FAERS Safety Report 21232042 (Version 1)
Quarter: 2022Q3

REPORT INFORMATION
  Report Type: Spontaneous
  Country: US (occurrence: US)
  Receive Date: 20220819
  Receipt Date: 20220819
  Transmission Date: 20221026
  Serious: No
  Sender: FDA-Public Use
  Company Number: US-ALLERGAN-2131449US

PATIENT
  Sex: Female

DRUGS (1)
  1. ACUVAIL [Suspect]
     Active Substance: KETOROLAC TROMETHAMINE
     Indication: Sjogren^s syndrome
     Dosage: ACTUAL: 2 GTT, BID, AS NEEDED
     Route: 047

REACTIONS (1)
  - Product use in unapproved indication [Unknown]
